FAERS Safety Report 7881609 (Version 2)
Quarter: 2013Q4

REPORT INFORMATION
  Report Type: Spontaneous
  Country: JP (occurrence: JP)
  Receive Date: 20110401
  Receipt Date: 20131228
  Transmission Date: 20140711
  Serious: Yes (Hospitalization, Other)
  Sender: FDA-Public Use
  Company Number: JP-ROCHE-636470

PATIENT
  Age: 58 Year
  Sex: Female
  Weight: 60 kg

DRUGS (22)
  1. ACTEMRA [Suspect]
     Indication: STILL^S DISEASE ADULT ONSET
     Route: 041
     Dates: start: 20090319, end: 20090319
  2. ACTEMRA [Suspect]
     Route: 041
     Dates: start: 20090628, end: 20090731
  3. PREDNISOLONE [Concomitant]
     Route: 048
     Dates: start: 20090302
  4. PREDNISOLONE [Concomitant]
     Route: 048
     Dates: start: 20090303, end: 20130309
  5. PREDNISOLONE [Concomitant]
     Route: 048
     Dates: start: 20090310, end: 20090324
  6. PREDNISOLONE [Concomitant]
     Route: 048
     Dates: start: 20090325, end: 20090330
  7. PREDNISOLONE [Concomitant]
     Route: 048
     Dates: start: 20090331, end: 20090403
  8. PREDNISOLONE [Concomitant]
     Route: 048
     Dates: start: 20090404, end: 20090420
  9. PREDNISOLONE [Concomitant]
     Route: 048
     Dates: start: 20090421, end: 20090512
  10. PREDNISOLONE [Concomitant]
     Route: 048
     Dates: start: 20090513, end: 200905
  11. PREDNISOLONE [Concomitant]
     Route: 048
     Dates: start: 200905, end: 200906
  12. PREDNISOLONE [Concomitant]
     Route: 048
     Dates: start: 20090608, end: 20090617
  13. PREDNISOLONE [Concomitant]
     Route: 048
     Dates: start: 20090618, end: 20090620
  14. PREDNISOLONE [Concomitant]
     Route: 048
     Dates: start: 20090621, end: 20090624
  15. PREDNISOLONE [Concomitant]
     Route: 048
     Dates: start: 20090625, end: 20090628
  16. PREDNISOLONE [Concomitant]
     Route: 048
     Dates: start: 20090629, end: 20090701
  17. PREDNISOLONE [Concomitant]
     Route: 048
     Dates: start: 20090702, end: 20090706
  18. PREDNISOLONE [Concomitant]
     Route: 048
     Dates: start: 20090707, end: 20090709
  19. PREDNISOLONE [Concomitant]
     Route: 048
     Dates: start: 20090710, end: 20090716
  20. PREDNISOLONE [Concomitant]
     Route: 048
     Dates: start: 20090717, end: 20090723
  21. PREDNISOLONE [Concomitant]
     Route: 048
     Dates: start: 20090724, end: 20090731
  22. PREDNISOLONE [Concomitant]
     Route: 048
     Dates: start: 20090801

REACTIONS (3)
  - Histiocytosis haematophagic [Recovered/Resolved]
  - Clostridium bacteraemia [Recovered/Resolved]
  - Cytomegalovirus viraemia [Recovered/Resolved]
